FAERS Safety Report 9044813 (Version 1)
Quarter: 2013Q1

REPORT INFORMATION
  Report Type: Report from Study
  Country: US (occurrence: US)
  Receive Date: 20130130
  Receipt Date: 20130130
  Transmission Date: 20140127
  Serious: Yes (Other)
  Sender: FDA-Public Use
  Company Number: US-ABBOTT-12P-163-0962853-00

PATIENT
  Sex: Male

DRUGS (1)
  1. HUMIRA 40 MG/0.8 ML PEN [Suspect]
     Indication: ANKYLOSING SPONDYLITIS
     Route: 058
     Dates: start: 20110329

REACTIONS (6)
  - Pancreatitis acute [Unknown]
  - Burning sensation [Unknown]
  - Hypoaesthesia [Unknown]
  - Lip swelling [Unknown]
  - Dysphagia [Unknown]
  - Hepatic enzyme increased [Unknown]
